FAERS Safety Report 14718463 (Version 3)
Quarter: 2018Q2

REPORT INFORMATION
  Report Type: Report from Study
  Country: MX (occurrence: MX)
  Receive Date: 20180404
  Receipt Date: 20180425
  Transmission Date: 20180711
  Serious: Yes (Other)
  Sender: FDA-Public Use
  Company Number: PHHY2018MX012199

PATIENT
  Age: 74 Year
  Sex: Female
  Weight: 58 kg

DRUGS (13)
  1. TRAVATAN [Suspect]
     Active Substance: TRAVOPROST
     Indication: GLAUCOMA
     Dosage: 2 DRP, BID (1 IN THE MORNING AND 1 IN THE AFTERNOON)
     Route: 065
  2. LACIDIPINO [Concomitant]
     Indication: HYPERTENSION
     Dosage: 1 DF, QHS
     Route: 048
  3. MINIPRESS [Concomitant]
     Active Substance: PRAZOSIN HYDROCHLORIDE
     Indication: HYPERTENSION
     Dosage: 3 DF, QD MORE THAN A YEAR AGO
     Route: 065
  4. MICARDIS [Concomitant]
     Active Substance: TELMISARTAN
     Indication: HYPERTENSION
     Dosage: 1 DF, QD
     Route: 048
  5. DIOVAN [Suspect]
     Active Substance: VALSARTAN
     Indication: HYPERTENSION
     Dosage: 320 MG, QD
     Route: 048
     Dates: start: 201702
  6. AMLODIPINE [Suspect]
     Active Substance: AMLODIPINE BESYLATE
     Indication: PRODUCT USED FOR UNKNOWN INDICATION
     Route: 065
  7. LACIPIL [Concomitant]
     Active Substance: LACIDIPINE
     Indication: HYPERTENSION
     Dosage: 1 DF, QD (MORE THAN 1 YEAR AGO)
     Route: 065
  8. FABROVEN [Concomitant]
     Active Substance: ASCORBIC ACID\HESPERIDIN METHYLCHALCONE\RUSCUS ACULEATUS ROOT
     Indication: CARDIOVASCULAR DISORDER
     Dosage: 2 DF, QD (1 IN THE MORNING AND 1 AT NIGHT) START 1 YEARS AGO
     Route: 065
  9. EXFORGE [Suspect]
     Active Substance: AMLODIPINE BESYLATE\VALSARTAN
     Indication: HYPERTENSION
     Dosage: UNK
     Route: 065
     Dates: start: 201702
  10. EXFORGE [Suspect]
     Active Substance: AMLODIPINE BESYLATE\VALSARTAN
     Dosage: 1 DF, QD (5 MG AMLODIPINE, VALSARTAN UNKNOWN)
     Route: 048
     Dates: start: 201703, end: 201703
  11. FABROVEN [Concomitant]
     Active Substance: ASCORBIC ACID\HESPERIDIN METHYLCHALCONE\RUSCUS ACULEATUS ROOT
     Indication: CARDIOVASCULAR DISORDER
  12. FABROVEN [Concomitant]
     Active Substance: ASCORBIC ACID\HESPERIDIN METHYLCHALCONE\RUSCUS ACULEATUS ROOT
     Indication: PERIPHERAL SWELLING
     Dosage: 2 DF (1 IN THE MORNING AND 1 AT NIGHT), BID SINCE 1 YEAR APPROXIMATELY
     Route: 048
  13. FABROVEN [Concomitant]
     Active Substance: ASCORBIC ACID\HESPERIDIN METHYLCHALCONE\RUSCUS ACULEATUS ROOT
     Indication: VARICOSE VEIN

REACTIONS (7)
  - Blood pressure increased [Recovered/Resolved]
  - Corneal decompensation [Unknown]
  - Intraocular pressure increased [Unknown]
  - Post procedural complication [Unknown]
  - Blood pressure increased [Recovered/Resolved]
  - Dizziness [Recovering/Resolving]
  - Erythema of eyelid [Recovered/Resolved]

NARRATIVE: CASE EVENT DATE: 20180122
